FAERS Safety Report 17547125 (Version 1)
Quarter: 2020Q1

REPORT INFORMATION
  Report Type: Report from Study
  Country: US (occurrence: US)
  Receive Date: 20200316
  Receipt Date: 20200316
  Transmission Date: 20200409
  Serious: Yes (Death)
  Sender: FDA-Public Use
  Company Number: US-OTSUKA-2019_007857

PATIENT
  Sex: Female

DRUGS (1)
  1. DEXTROMETHORPHAN/QUINIDINE [Suspect]
     Active Substance: DEXTROMETHORPHAN HYDROBROMIDE\QUINIDINE SULFATE
     Indication: AFFECT LABILITY
     Dosage: UNK, (20/10MG)
     Route: 065

REACTIONS (13)
  - Arthralgia [Unknown]
  - Agitation [Unknown]
  - Rash [Unknown]
  - Affect lability [Unknown]
  - Treatment noncompliance [Unknown]
  - Dysphagia [Unknown]
  - Screaming [Unknown]
  - Lethargy [Unknown]
  - Death [Fatal]
  - Urinary tract infection [Unknown]
  - Mental status changes [Unknown]
  - Asthenia [Unknown]
  - Mobility decreased [Unknown]
